FAERS Safety Report 12166988 (Version 1)
Quarter: 2016Q1

REPORT INFORMATION
  Report Type: Spontaneous
  Country: FR (occurrence: FR)
  Receive Date: 20160310
  Receipt Date: 20160310
  Transmission Date: 20160526
  Serious: Yes (Other)
  Sender: FDA-Public Use
  Company Number: FR-009507513-1603FRA002980

PATIENT
  Age: 18 Year
  Sex: Male

DRUGS (2)
  1. AERIUS [Suspect]
     Active Substance: DESLORATADINE
     Dosage: 10 MG, QD
     Route: 048
     Dates: start: 20160224
  2. AERIUS [Suspect]
     Active Substance: DESLORATADINE
     Dosage: 10 MG, BID
     Route: 048
     Dates: start: 20151202, end: 20160224

REACTIONS (4)
  - Nightmare [Unknown]
  - Abdominal pain [Unknown]
  - Vomiting [Unknown]
  - Nausea [Unknown]

NARRATIVE: CASE EVENT DATE: 201512
